FAERS Safety Report 5387774-0 (Version None)
Quarter: 2007Q3

REPORT INFORMATION
  Report Type: 
  Country: None (occurrence: None)
  Receive Date: 20070712
  Receipt Date: 20070626
  Transmission Date: 20080115
  Serious: Yes (Hospitalization)
  Sender: FDA-Public Use
  Company Number: DSA_30036_2007

PATIENT
  Sex: Female

DRUGS (8)
  1. HERBESSER (HERBESSER - SLOW RELEASE) [Suspect]
     Indication: HYPERTENSION
     Dosage: (100 MG QD ORAL)
     Route: 048
     Dates: start: 20070101
  2. METHYCOBAL (METHYLCOBAL) [Suspect]
     Indication: ANGINA PECTORIS
     Dosage: (1 MG QD DF ORAL)
     Route: 048
  3. ISOSORBIDE DINITRATE [Suspect]
     Indication: ANGINA PECTORIS
     Dosage: (40 MG QD ORAL)
     Route: 048
  4. NORVASC [Suspect]
     Indication: HYPERTENSION
     Dosage: (2.5 MG QD ORAL)
     Route: 048
  5. MAGNESIUM OXIDE (MAGNESIUM OXIDE) [Suspect]
     Indication: CONSTIPATION
     Dosage: (2.5 MG QD)
  6. UFT /01071701/ (UFT) [Suspect]
     Indication: BLADDER CANCER
     Dosage: (300 MG QD ORAL)
     Route: 048
  7. HICEE /00008001/ (HICEE) [Suspect]
     Indication: BLADDER CANCER
     Dosage: (DF ORAL)
     Route: 048
  8. HERBAL PREPARATION (CHINESE HERBAL [Suspect]
     Indication: BLADDER CANCER
     Dosage: (1.5 MG QD ORAL)
     Route: 048

REACTIONS (5)
  - CHEST DISCOMFORT [None]
  - DYSPHORIA [None]
  - NODAL RHYTHM [None]
  - SICK SINUS SYNDROME [None]
  - VOMITING [None]
